FAERS Safety Report 17473285 (Version 1)
Quarter: 2020Q1

REPORT INFORMATION
  Report Type: Spontaneous
  Country: US (occurrence: US)
  Receive Date: 20200218
  Receipt Date: 20200218
  Transmission Date: 20200409
  Serious: Yes (Other)
  Sender: FDA-Public Use
  Company Number: None

PATIENT
  Age: 9 Year
  Sex: Male
  Weight: 41.73 kg

DRUGS (2)
  1. FISH OIL [Concomitant]
     Active Substance: FISH OIL
  2. CEPHALEXIN. [Suspect]
     Active Substance: CEPHALEXIN
     Indication: DRUG THERAPY

REACTIONS (7)
  - Screaming [None]
  - Abnormal behaviour [None]
  - Crying [None]
  - Agitation [None]
  - Anger [None]
  - Eye swelling [None]
  - Nervousness [None]

NARRATIVE: CASE EVENT DATE: 20200122
